FAERS Safety Report 15078549 (Version 1)
Quarter: 2018Q2

REPORT INFORMATION
  Report Type: Spontaneous
  Country: US (occurrence: US)
  Receive Date: 20180627
  Receipt Date: 20180627
  Transmission Date: 20180711
  Serious: No
  Sender: FDA-Public Use
  Company Number: US-009507513-1806USA008751

PATIENT
  Sex: Female

DRUGS (1)
  1. GANIRELIX ACETATE INJECTION [Suspect]
     Active Substance: GANIRELIX ACETATE
     Dosage: STRENGTH: 250/0.5 MCRG/ML

REACTIONS (4)
  - Intentional product misuse [Unknown]
  - Needle issue [Unknown]
  - No adverse event [Unknown]
  - Drug dose omission [Unknown]
